FAERS Safety Report 19749304 (Version 1)
Quarter: 2021Q3

REPORT INFORMATION
  Report Type: Spontaneous
  Country: US (occurrence: US)
  Receive Date: 20210825
  Receipt Date: 20210825
  Transmission Date: 20211014
  Serious: No
  Sender: FDA-Public Use
  Company Number: None

PATIENT
  Age: 70 Year
  Sex: Female
  Weight: 73.94 kg

DRUGS (4)
  1. FLUSH SALINE 0.9% [Concomitant]
  2. DIPHENHYDRAMINE 25MG [Concomitant]
     Active Substance: DIPHENHYDRAMINE
  3. GAMUNEX?C [Suspect]
     Active Substance: HUMAN IMMUNOGLOBULIN G
  4. DIPHENHYDRAMINE 50MG [Concomitant]
     Active Substance: DIPHENHYDRAMINE

REACTIONS (4)
  - Flushing [None]
  - Heart rate increased [None]
  - Chest discomfort [None]
  - Chills [None]

NARRATIVE: CASE EVENT DATE: 20210816
